FAERS Safety Report 15719376 (Version 1)
Quarter: 2018Q4

REPORT INFORMATION
  Report Type: Spontaneous
  Country: PL (occurrence: PL)
  Receive Date: 20181213
  Receipt Date: 20181213
  Transmission Date: 20190205
  Serious: Yes (Other)
  Sender: FDA-Public Use
  Company Number: PL-MYLANLABS-2018M1091701

PATIENT
  Sex: Male

DRUGS (1)
  1. MESALAZINE [Suspect]
     Active Substance: MESALAMINE
     Indication: COLITIS ULCERATIVE
     Dosage: 2 GRAM, QD
     Route: 048

REACTIONS (8)
  - Frequent bowel movements [Recovered/Resolved]
  - Haematochezia [Recovered/Resolved]
  - Pyrexia [Recovering/Resolving]
  - Gastrointestinal sounds abnormal [Recovered/Resolved]
  - Drug ineffective [Unknown]
  - Affective disorder [Recovering/Resolving]
  - Flatulence [Recovered/Resolved]
  - Abdominal pain [Recovered/Resolved]
